FAERS Safety Report 11897733 (Version 1)
Quarter: 2016Q1

REPORT INFORMATION
  Report Type: Report from Study
  Country: CA (occurrence: CA)
  Receive Date: 20160108
  Receipt Date: 20160108
  Transmission Date: 20160526
  Serious: Yes (Death, Other)
  Sender: FDA-Public Use
  Company Number: PHHY2014CA071087

PATIENT
  Age: 75 Year
  Sex: Female

DRUGS (2)
  1. ZOMETA [Suspect]
     Active Substance: ZOLEDRONIC ACID
     Indication: BREAST CANCER
     Dosage: 3.3 MG,EVERY 4 WEEKS
     Route: 042
     Dates: start: 20140507
  2. ZOMETA [Suspect]
     Active Substance: ZOLEDRONIC ACID
     Dosage: 3 MG, EVERY 8 WEEKS
     Route: 042
     Dates: end: 20151125

REACTIONS (7)
  - Urinary tract infection [Recovering/Resolving]
  - Malaise [Unknown]
  - Abdominal pain [Unknown]
  - Blood pressure decreased [Unknown]
  - Back pain [Unknown]
  - Death [Fatal]
  - Abdominal discomfort [Unknown]

NARRATIVE: CASE EVENT DATE: 20150805
